FAERS Safety Report 9785425 (Version 2)
Quarter: 2014Q1

REPORT INFORMATION
  Report Type: Spontaneous
  Country: US (occurrence: None)
  Receive Date: 20131224
  Receipt Date: 20140107
  Transmission Date: 20141002
  Serious: Yes (Hospitalization)
  Sender: FDA-Public Use
  Company Number: AUR-APL-2013-10507

PATIENT
  Age: 47 Year
  Sex: Female
  Weight: 110 kg

DRUGS (3)
  1. AMLODIPINE [Suspect]
     Indication: PRODUCT USED FOR UNKNOWN INDICATION
     Dosage: 70 TABLETS
     Route: 048
  2. ETHANOL (ETHANOL) (UNKNOWN) (ETHANOL) [Suspect]
     Indication: PRODUCT USED FOR UNKNOWN INDICATION
  3. ZIPRASIDONE (ZIPRASIDONE) [Concomitant]

REACTIONS (16)
  - Haemodynamic instability [None]
  - Shock [None]
  - Overdose [None]
  - Hyperlipidaemia [None]
  - Hypoxia [None]
  - General physical health deterioration [None]
  - Metabolic acidosis [None]
  - Anxiety [None]
  - Vascular resistance systemic decreased [None]
  - Blood glucose increased [None]
  - Pleural effusion [None]
  - Poisoning [None]
  - Nodal rhythm [None]
  - Muscle contractions involuntary [None]
  - Tongue disorder [None]
  - Skin warm [None]
